FAERS Safety Report 11881419 (Version 2)
Quarter: 2017Q2

REPORT INFORMATION
  Report Type: Spontaneous
  Country: OM (occurrence: OM)
  Receive Date: 20151231
  Receipt Date: 20170503
  Transmission Date: 20170829
  Serious: Yes (Other)
  Sender: FDA-Public Use
  Company Number: OM-ACCORD-036632

PATIENT
  Age: 6 Month
  Sex: Female

DRUGS (3)
  1. AMLODIPINE [Suspect]
     Active Substance: AMLODIPINE BESYLATE
     Indication: HYPERTENSION
     Dosage: 0.4 MG/KG/DAY
  2. FLUCONAZOLE. [Interacting]
     Active Substance: FLUCONAZOLE
     Indication: PRODUCT USED FOR UNKNOWN INDICATION
  3. HYDRALAZINE [Interacting]
     Active Substance: HYDRALAZINE HYDROCHLORIDE
     Indication: HYPERTENSION
     Dosage: 4 MG/KG/DAY

REACTIONS (3)
  - Generalised oedema [Recovered/Resolved]
  - Drug interaction [Unknown]
  - Ascites [Recovered/Resolved]
